FAERS Safety Report 11146702 (Version 1)
Quarter: 2015Q2

REPORT INFORMATION
  Report Type: Spontaneous
  Country: BR (occurrence: BR)
  Receive Date: 20150528
  Receipt Date: 20150528
  Transmission Date: 20150821
  Serious: Yes (Hospitalization)
  Sender: FDA-Public Use
  Company Number: BR-PFIZER INC-2014183549

PATIENT
  Sex: Male
  Weight: 2.5 kg

DRUGS (6)
  1. MATERNA /02266601/ [Concomitant]
     Active Substance: MINERALS\VITAMINS
     Indication: VITAMIN SUPPLEMENTATION
     Dosage: 1 TABLET, DAILY
     Route: 064
     Dates: end: 2015
  2. METHYLDOPA. [Concomitant]
     Active Substance: METHYLDOPA
     Indication: BLOOD PRESSURE INCREASED
     Dosage: 250 MG, DAILY
     Route: 064
     Dates: start: 201412, end: 201501
  3. PYRIDOXAMINE HYDROCHLORIDE\THIAMINE HYDROCHLORIDE\CYANOCOBALAMIN [Concomitant]
     Active Substance: CYANOCOBALAMIN\PYRIDOXAMINE HYDROCHLORIDE\THIAMINE HYDROCHLORIDE
     Indication: VITAMIN SUPPLEMENTATION
  4. PRISTIQ EXTENDED RELEASE [Suspect]
     Active Substance: DESVENLAFAXINE SUCCINATE
     Indication: DEPRESSION
     Dosage: 100 MG DAILY IN THE MORNING
     Route: 064
     Dates: start: 2013, end: 201407
  5. METHYLDOPA. [Concomitant]
     Active Substance: METHYLDOPA
     Dosage: 500 MG, DAILY
     Route: 064
     Dates: start: 201501, end: 201502
  6. PYRIDOXAMINE HYDROCHLORIDE\THIAMINE HYDROCHLORIDE\CYANOCOBALAMIN [Concomitant]
     Active Substance: CYANOCOBALAMIN\PYRIDOXAMINE HYDROCHLORIDE\THIAMINE HYDROCHLORIDE
     Indication: SCIATIC NERVE INJURY
     Dosage: 2 TABLETS, DAILY
     Route: 064
     Dates: end: 2015

REACTIONS (3)
  - Low birth weight baby [Recovering/Resolving]
  - Maternal exposure during pregnancy [Recovering/Resolving]
  - Hypoglycaemia [Recovered/Resolved]

NARRATIVE: CASE EVENT DATE: 201406
